FAERS Safety Report 9050619 (Version 3)
Quarter: 2019Q2

REPORT INFORMATION
  Report Type: Spontaneous
  Country: US (occurrence: US)
  Receive Date: 20130205
  Receipt Date: 20190614
  Transmission Date: 20190711
  Serious: Yes (Other)
  Sender: FDA-Public Use
  Company Number: US-PFIZER INC-2013042439

PATIENT
  Age: 51 Year
  Sex: Male
  Weight: 82 kg

DRUGS (7)
  1. VENLAFAXINE HCL [Suspect]
     Active Substance: VENLAFAXINE HYDROCHLORIDE
     Indication: DEPRESSION
     Dosage: 37.5 MG, 1X/DAY
  2. GABAPENTIN. [Suspect]
     Active Substance: GABAPENTIN
     Indication: HEADACHE
     Dosage: 800 MG, 3X/DAY (FOR THE LAST EIGHT YEARS)
  3. BACLOFEN. [Concomitant]
     Active Substance: BACLOFEN
     Indication: MUSCLE SPASMS
     Dosage: 20 MG, 3X/DAY
  4. PRISTIQ EXTENDED-RELEASE [Suspect]
     Active Substance: DESVENLAFAXINE SUCCINATE
     Indication: PAIN
     Dosage: 50 MG, 1X/DAY
  5. PRISTIQ EXTENDED-RELEASE [Suspect]
     Active Substance: DESVENLAFAXINE SUCCINATE
     Indication: FIBROMYALGIA
  6. MELOXICAM. [Suspect]
     Active Substance: MELOXICAM
     Indication: DEPRESSION
     Dosage: 15 MG, 1X/DAY
  7. PRISTIQ EXTENDED-RELEASE [Suspect]
     Active Substance: DESVENLAFAXINE SUCCINATE
     Indication: DEPRESSION

REACTIONS (3)
  - Hypoacusis [Not Recovered/Not Resolved]
  - Visual impairment [Unknown]
  - Euphoric mood [Unknown]

NARRATIVE: CASE EVENT DATE: 2012
